FAERS Safety Report 15982805 (Version 1)
Quarter: 2019Q1

REPORT INFORMATION
  Report Type: Spontaneous
  Country: SA (occurrence: SA)
  Receive Date: 20190219
  Receipt Date: 20190219
  Transmission Date: 20190418
  Serious: Yes (Death)
  Sender: FDA-Public Use
  Company Number: SA-BIOMARINAP-SA-2019-122076

PATIENT
  Age: 8 Year
  Sex: Male
  Weight: 30 kg

DRUGS (1)
  1. ALDURAZYME [Suspect]
     Active Substance: LARONIDASE
     Indication: MUCOPOLYSACCHARIDOSIS I
     Dosage: UNK UNK, QW
     Route: 041

REACTIONS (2)
  - Treatment noncompliance [Unknown]
  - Disease progression [Fatal]
